FAERS Safety Report 23196518 (Version 3)
Quarter: 2024Q1

REPORT INFORMATION
  Report Type: Report from Study
  Country: US (occurrence: US)
  Receive Date: 20231117
  Receipt Date: 20240306
  Transmission Date: 20240409
  Serious: Yes (Hospitalization, Other)
  Sender: FDA-Public Use
  Company Number: US-SANDOZ-SDZ2023US052502

PATIENT
  Sex: Female
  Weight: 50 kg

DRUGS (3)
  1. OPSUMIT [Suspect]
     Active Substance: MACITENTAN
     Indication: Product used for unknown indication
     Dosage: UNK
     Route: 065
  2. TREPROSTINIL [Suspect]
     Active Substance: TREPROSTINIL
     Indication: Pulmonary arterial hypertension
     Dosage: UNK UNK, 123.3 NG/KG/MIN, CONT
     Route: 058
  3. TREPROSTINIL [Suspect]
     Active Substance: TREPROSTINIL
     Indication: Pulmonary arterial hypertension
     Dosage: UNK UNK, 123.3 NG/KG/MIN, CONT
     Route: 065
     Dates: start: 20231115

REACTIONS (7)
  - Respiratory distress [Unknown]
  - Pneumothorax [Unknown]
  - Hypoxia [Unknown]
  - Cough [Unknown]
  - Rhinorrhoea [Unknown]
  - Illness [Unknown]
  - Dyspnoea [Unknown]
